FAERS Safety Report 14751902 (Version 1)
Quarter: 2018Q2

REPORT INFORMATION
  Report Type: Spontaneous
  Country: US (occurrence: US)
  Receive Date: 20180412
  Receipt Date: 20180412
  Transmission Date: 20180711
  Serious: Yes (Hospitalization, Other)
  Sender: FDA-Public Use
  Company Number: US-GLAXOSMITHKLINE-US2018GSK062110

PATIENT
  Age: 76 Year
  Sex: Male

DRUGS (5)
  1. VENTOLIN HFA [Suspect]
     Active Substance: ALBUTEROL SULFATE
     Indication: CHRONIC OBSTRUCTIVE PULMONARY DISEASE
  2. CARVEDILOL. [Concomitant]
     Active Substance: CARVEDILOL
  3. VENTOLIN HFA [Suspect]
     Active Substance: ALBUTEROL SULFATE
     Indication: ASTHMA
     Dosage: 2 PUFF(S), UNK
     Route: 055
  4. ELIQUIS [Concomitant]
     Active Substance: APIXABAN
  5. LIPITOR [Concomitant]
     Active Substance: ATORVASTATIN CALCIUM

REACTIONS (12)
  - Head injury [Recovered/Resolved with Sequelae]
  - Nerve injury [Unknown]
  - Fall [Recovered/Resolved with Sequelae]
  - Procedural pain [Not Recovered/Not Resolved]
  - Cranial operation [Unknown]
  - Aneurysm [Recovering/Resolving]
  - Stent placement [Recovering/Resolving]
  - Wrong technique in product usage process [Unknown]
  - Haemorrhage intracranial [Unknown]
  - Post procedural complication [Unknown]
  - Surgery [Unknown]
  - Concussion [Unknown]

NARRATIVE: CASE EVENT DATE: 20171116
